FAERS Safety Report 9200253 (Version 3)
Quarter: 2016Q3

REPORT INFORMATION
  Report Type: Spontaneous
  Country: US (occurrence: US)
  Receive Date: 20130329
  Receipt Date: 20160812
  Transmission Date: 20161109
  Serious: Yes (Hospitalization, Other)
  Sender: FDA-Public Use
  Company Number: US-MERCK-1303USA011402

PATIENT
  Sex: Female

DRUGS (4)
  1. FOSAMAX [Suspect]
     Active Substance: ALENDRONATE SODIUM
     Dosage: 10 MG, QD
     Route: 048
     Dates: start: 1994
  2. BONIVA [Suspect]
     Active Substance: IBANDRONATE SODIUM
     Indication: OSTEOPOROSIS
     Route: 048
  3. FOSAMAX [Suspect]
     Active Substance: ALENDRONATE SODIUM
     Indication: OSTEOPOROSIS
     Dosage: UNK
     Route: 048
     Dates: start: 1994, end: 201007
  4. FOSAMAX [Suspect]
     Active Substance: ALENDRONATE SODIUM
     Dosage: 70 MG, UNK
     Route: 048
     Dates: start: 2006

REACTIONS (24)
  - Haemorrhagic anaemia [Unknown]
  - Femur fracture [Unknown]
  - Fall [Unknown]
  - Skin irritation [Unknown]
  - Insomnia [Unknown]
  - Dental prosthesis placement [Unknown]
  - Hypertension [Unknown]
  - Cerumen impaction [Recovered/Resolved]
  - Decubitus ulcer [Recovered/Resolved]
  - Limb asymmetry [Unknown]
  - Osteoarthritis [Unknown]
  - Peripheral swelling [Unknown]
  - Femur fracture [Unknown]
  - Breast conserving surgery [Unknown]
  - Hypothyroidism [Unknown]
  - Jaw disorder [Unknown]
  - Asthma [Unknown]
  - Osteoarthritis [Unknown]
  - Chronic obstructive pulmonary disease [Unknown]
  - Fall [Unknown]
  - Anaemia postoperative [Unknown]
  - Hypercholesterolaemia [Unknown]
  - Diabetes mellitus [Unknown]
  - Bursitis [Unknown]

NARRATIVE: CASE EVENT DATE: 1996
